FAERS Safety Report 10342621 (Version 2)
Quarter: 2014Q3

REPORT INFORMATION
  Report Type: Spontaneous
  Country: DK (occurrence: DK)
  Receive Date: 20140725
  Receipt Date: 20140725
  Transmission Date: 20150326
  Serious: Yes (Other)
  Sender: FDA-Public Use
  Company Number: DK-ACTAVIS-2013B-02021

PATIENT
  Age: 68 Year
  Sex: Male

DRUGS (2)
  1. GABAPENTIN. [Suspect]
     Active Substance: GABAPENTIN
     Indication: SENSORY DISTURBANCE
     Dosage: 300 MG, BID. UP TO 10 CAPSULES EACH DAY, IF REQUIRED
     Route: 048
     Dates: start: 20100705, end: 201010
  2. IMIPRAMIN [Concomitant]
     Indication: NEURALGIA
     Dosage: 25 MG, QID
     Route: 048

REACTIONS (5)
  - Loose tooth [Not Recovered/Not Resolved]
  - Tooth fracture [Not Recovered/Not Resolved]
  - Dental caries [Unknown]
  - Tooth disorder [Not Recovered/Not Resolved]
  - Enamel anomaly [Not Recovered/Not Resolved]

NARRATIVE: CASE EVENT DATE: 201008
